FAERS Safety Report 8163478-6 (Version None)
Quarter: 2012Q1

REPORT INFORMATION
  Report Type: 
  Country: None (occurrence: None)
  Receive Date: 20120224
  Receipt Date: 20120217
  Transmission Date: 20120608
  Serious: Yes (Other)
  Sender: FDA-Public Use
  Company Number: JP-VERTEX PHARMACEUTICALS INC.-AE-2012-001975

PATIENT
  Age: 40 Year
  Sex: Male

DRUGS (6)
  1. REBETOL [Concomitant]
     Indication: HEPATITIS C
     Route: 048
     Dates: start: 20120120
  2. REBETOL [Concomitant]
     Route: 048
     Dates: start: 20120203
  3. PEG-INTRON [Concomitant]
     Indication: HEPATITIS C
     Route: 058
     Dates: start: 20120120
  4. TELAVIC (TELAPREVIR) [Suspect]
     Indication: HEPATITIS C
     Route: 048
     Dates: start: 20120120
  5. PEG-INTRON [Concomitant]
     Route: 058
     Dates: start: 20120127
  6. PEG-INTRON [Concomitant]
     Route: 058
     Dates: start: 20120203

REACTIONS (2)
  - ANAEMIA [None]
  - NEUTROPENIA [None]
